FAERS Safety Report 4315194-6 (Version None)
Quarter: 2004Q1

REPORT INFORMATION
  Report Type: 
  Country: None (occurrence: None)
  Receive Date: 20040310
  Receipt Date: 20040224
  Transmission Date: 20041129
  Serious: Yes (Other)
  Sender: FDA-Public Use
  Company Number: US-JNJFOC-20031004381

PATIENT
  Age: 49 Year
  Sex: Male
  Weight: 86.1834 kg

DRUGS (15)
  1. REMICADE [Suspect]
     Indication: COLITIS ULCERATIVE
     Dosage: 1 IN 1 DAY, INTRAVENOUS
     Route: 042
     Dates: start: 20030122
  2. REMICADE [Suspect]
     Indication: COLITIS ULCERATIVE
     Dosage: 1 IN 1 DAY, INTRAVENOUS
     Route: 042
     Dates: start: 20030205
  3. REMICADE [Suspect]
     Indication: COLITIS ULCERATIVE
     Dosage: 1 IN 1 DAY, INTRAVENOUS
     Route: 042
     Dates: start: 20030313
  4. REMICADE [Suspect]
     Indication: COLITIS ULCERATIVE
     Dosage: 1 IN 1 DAY, INTRAVENOUS
     Route: 042
     Dates: start: 20030508
  5. REMICADE [Suspect]
     Indication: COLITIS ULCERATIVE
     Dosage: 1 IN 1 DAY, INTRAVENOUS
     Route: 042
     Dates: start: 20030630
  6. REMICADE [Suspect]
     Indication: COLITIS ULCERATIVE
     Dosage: 1 IN 1 DAY, INTRAVENOUS
     Route: 042
     Dates: start: 20030825
  7. REMICADE [Suspect]
  8. REMICADE [Suspect]
  9. REMICADE [Suspect]
  10. REMICADE [Suspect]
  11. METHOTREXATE [Concomitant]
  12. XANAX [Concomitant]
  13. DARVOCET (PROPACET) [Concomitant]
  14. ZYRTEC [Concomitant]
  15. PREVACID [Concomitant]

REACTIONS (1)
  - SARCOMA [None]
